FAERS Safety Report 4833246-9 (Version None)
Quarter: 2005Q4

REPORT INFORMATION
  Report Type: 
  Country: None (occurrence: None)
  Receive Date: 20051117
  Receipt Date: 20051104
  Transmission Date: 20060501
  Serious: Yes (Death, Hospitalization)
  Sender: FDA-Public Use
  Company Number: EWC051147163

PATIENT
  Age: 57 Year
  Sex: Female

DRUGS (1)
  1. XIGRIS [Suspect]
     Dosage: 24 UG/KG/HR/3 HOUR
     Dates: start: 20051104

REACTIONS (3)
  - MOUTH HAEMORRHAGE [None]
  - SKIN HAEMORRHAGE [None]
  - WOUND HAEMORRHAGE [None]
